FAERS Safety Report 6706620-3 (Version None)
Quarter: 2010Q2

REPORT INFORMATION
  Report Type: 
  Country: None (occurrence: None)
  Receive Date: 20100503
  Receipt Date: 20100419
  Transmission Date: 20101027
  Serious: Yes (Other)
  Sender: FDA-Public Use
  Company Number: ES-ROCHE-698412

PATIENT
  Age: 44 Year
  Sex: Female

DRUGS (3)
  1. TRASTUZUMAB [Suspect]
     Indication: BREAST CANCER
     Route: 065
  2. TRASTUZUMAB [Suspect]
     Dosage: STARTED 6 WEEKS AFTER STOPPING THE FIRST THERAPY.
     Route: 065
  3. PACLITAXEL [Concomitant]
     Indication: BREAST CANCER

REACTIONS (3)
  - ANAEMIA [None]
  - ARTHRITIS [None]
  - INTERSTITIAL GRANULOMATOUS DERMATITIS [None]
